FAERS Safety Report 6690931-4 (Version None)
Quarter: 2010Q2

REPORT INFORMATION
  Report Type: 
  Country: None (occurrence: None)
  Receive Date: 20100421
  Receipt Date: 20100416
  Transmission Date: 20101027
  Serious: Yes (Death, Hospitalization, Other)
  Sender: FDA-Public Use
  Company Number: US-ELI_LILLY_AND_COMPANY-US201004004674

PATIENT
  Age: 77 Year
  Sex: Male
  Weight: 64.9 kg

DRUGS (4)
  1. GEMCITABINE HCL [Suspect]
     Indication: BLADDER CANCER
     Dosage: 1000 MG/M2, OTHER
     Route: 042
     Dates: start: 20090202
  2. CISPLATIN [Suspect]
     Indication: BLADDER CANCER
     Dosage: 70 MG/M2, OTHER
     Route: 042
     Dates: start: 20090202
  3. SUNITINIB MALATE [Suspect]
     Indication: BLADDER CANCER
     Dosage: 37.5 MG, OTHER
     Route: 048
     Dates: start: 20090202
  4. COMPAZINE [Concomitant]
     Dates: start: 20090202, end: 20090411

REACTIONS (5)
  - ASTHENIA [None]
  - DYSPNOEA [None]
  - PANCYTOPENIA [None]
  - RESPIRATORY FAILURE [None]
  - SEPSIS [None]
